FAERS Safety Report 17320571 (Version 2)
Quarter: 2022Q1

REPORT INFORMATION
  Report Type: Other
  Country: US (occurrence: US)
  Receive Date: 20200126
  Receipt Date: 20220123
  Transmission Date: 20220423
  Serious: No
  Sender: FDA-Public Use
  Company Number: US-ACORDA-ACO_157622_2019

PATIENT
  Age: 40 Year
  Sex: Female

DRUGS (2)
  1. AMPYRA [Suspect]
     Active Substance: DALFAMPRIDINE
     Indication: Multiple sclerosis
     Dosage: 10 MILLIGRAM, Q 12 HRS (BID)
     Route: 048
  2. AUBAGIO [Suspect]
     Active Substance: TERIFLUNOMIDE
     Indication: Multiple sclerosis
     Dosage: 14 MILLIGRAM, QD
     Route: 048
     Dates: start: 201802

REACTIONS (6)
  - Flushing [Unknown]
  - Throat clearing [Not Recovered/Not Resolved]
  - Depression [Unknown]
  - Decreased interest [Unknown]
  - Anxiety [Unknown]
  - Gait disturbance [None]

NARRATIVE: CASE EVENT DATE: 20191101
